FAERS Safety Report 5090071-4 (Version None)
Quarter: 2006Q3

REPORT INFORMATION
  Report Type: 
  Country: None (occurrence: None)
  Receive Date: 20060828
  Receipt Date: 20060821
  Transmission Date: 20061208
  Serious: Yes (Hospitalization, Other)
  Sender: FDA-Public Use
  Company Number: 2006AC01518

PATIENT
  Age: 2 Year
  Sex: Female

DRUGS (1)
  1. EMLA [Suspect]
     Indication: ANAESTHESIA
     Route: 061

REACTIONS (3)
  - COMA [None]
  - METHAEMOGLOBINAEMIA [None]
  - OVERDOSE [None]
